FAERS Safety Report 8195732-6 (Version None)
Quarter: 2012Q1

REPORT INFORMATION
  Report Type: 
  Country: None (occurrence: None)
  Receive Date: 20120308
  Receipt Date: 20120305
  Transmission Date: 20120608
  Serious: Yes (Other)
  Sender: FDA-Public Use
  Company Number: US-BAYER-2012-021858

PATIENT
  Age: 91 Year
  Sex: Male

DRUGS (5)
  1. PLAVIX [Suspect]
     Dosage: 75 MG, QD
     Route: 048
     Dates: start: 20120101
  2. CALCIUM [Concomitant]
  3. VITAMIN D [Concomitant]
  4. ASPIRIN [Suspect]
     Dosage: UNK
     Route: 048
  5. VITAMIN B-12 [Concomitant]

REACTIONS (1)
  - POST PROCEDURAL HAEMORRHAGE [None]
